FAERS Safety Report 23333022 (Version 1)
Quarter: 2023Q4

REPORT INFORMATION
  Report Type: Report from Study
  Country: US (occurrence: US)
  Receive Date: 20231222
  Receipt Date: 20231222
  Transmission Date: 20240110
  Serious: Yes (Other)
  Sender: FDA-Public Use
  Company Number: US-SUN PHARMACEUTICAL INDUSTRIES LTD-2023R1-425078

PATIENT
  Age: 19 Year
  Sex: Male

DRUGS (4)
  1. SULFASALAZINE [Suspect]
     Active Substance: SULFASALAZINE
     Indication: Juvenile idiopathic arthritis
     Dosage: UNK
     Route: 065
     Dates: start: 201604, end: 201608
  2. HUMIRA [Suspect]
     Active Substance: ADALIMUMAB
     Indication: Juvenile idiopathic arthritis
     Dosage: UNK
     Route: 065
     Dates: start: 201507
  3. HUMIRA [Suspect]
     Active Substance: ADALIMUMAB
     Dosage: INCREASED TO WEEKLY
     Route: 065
     Dates: start: 201510
  4. ENBREL [Suspect]
     Active Substance: ETANERCEPT
     Indication: Juvenile idiopathic arthritis
     Dosage: UNK
     Route: 065
     Dates: start: 2013, end: 2014

REACTIONS (1)
  - Treatment failure [Unknown]
